FAERS Safety Report 5360118-6 (Version None)
Quarter: 2007Q2

REPORT INFORMATION
  Report Type: 
  Country: None (occurrence: None)
  Receive Date: 20070618
  Receipt Date: 20070606
  Transmission Date: 20071010
  Serious: Yes (Congenital Anomaly)
  Sender: FDA-Public Use
  Company Number: PHBS2007IT09700

PATIENT
  Weight: 3.32 kg

DRUGS (3)
  1. CARBAMAZEPINE [Suspect]
     Dosage: MATERNAL DOSE UNKNOWN
     Route: 064
  2. PHENOBARBITAL TAB [Suspect]
     Dosage: MATERNAL DOSE UNKNOWN
     Route: 064
  3. FOLIC ACID [Concomitant]
     Route: 064

REACTIONS (5)
  - CONGENITAL CYSTIC KIDNEY DISEASE [None]
  - CONGENITAL EYELID MALFORMATION [None]
  - CONGENITAL NOSE MALFORMATION [None]
  - DRUG EXPOSURE DURING PREGNANCY [None]
  - HYPERTELORISM OF ORBIT [None]
